FAERS Safety Report 12589237 (Version 3)
Quarter: 2016Q4

REPORT INFORMATION
  Report Type: Spontaneous
  Country: US (occurrence: US)
  Receive Date: 20160725
  Receipt Date: 20161121
  Transmission Date: 20170207
  Serious: No
  Sender: FDA-Public Use
  Company Number: US-JNJFOC-20150512103

PATIENT
  Sex: Male

DRUGS (5)
  1. ATENOLOL. [Concomitant]
     Active Substance: ATENOLOL
  2. IMBRUVICA [Suspect]
     Active Substance: IBRUTINIB
     Indication: CHRONIC LYMPHOCYTIC LEUKAEMIA
     Route: 048
     Dates: start: 20140707
  3. BABY ASPIRIN [Concomitant]
     Active Substance: ASPIRIN
  4. ASPIRIN. [Concomitant]
     Active Substance: ASPIRIN
  5. ALLOPURINOL. [Concomitant]
     Active Substance: ALLOPURINOL

REACTIONS (9)
  - Adverse event [Unknown]
  - Arthralgia [Unknown]
  - Bone pain [Unknown]
  - Insomnia [Unknown]
  - Muscle spasms [Not Recovered/Not Resolved]
  - Myalgia [Unknown]
  - Vision blurred [Unknown]
  - Memory impairment [Unknown]
  - Drug dose omission [Unknown]
